FAERS Safety Report 8849564 (Version 1)
Quarter: 2012Q4

REPORT INFORMATION
  Report Type: 
  Country: BR (occurrence: BR)
  Receive Date: 20121019
  Receipt Date: 20121019
  Transmission Date: 20130627
  Serious: Yes (Other)
  Sender: FDA-Public Use
  Company Number: BR-PFIZER INC-2012258753

PATIENT
  Age: 45 Year
  Sex: Female
  Weight: 74 kg

DRUGS (1)
  1. LYRICA [Suspect]
     Dosage: 75 mg (one capsule), 3x/day (every 8 hours)
     Dates: start: 201209

REACTIONS (2)
  - Plasma cell myeloma [Not Recovered/Not Resolved]
  - Pain [Not Recovered/Not Resolved]
